FAERS Safety Report 6527037-0 (Version None)
Quarter: 2009Q4

REPORT INFORMATION
  Report Type: 
  Country: None (occurrence: None)
  Receive Date: 20091229
  Receipt Date: 20091215
  Transmission Date: 20100525
  Serious: Yes (Life-Threatening, Hospitalization)
  Sender: FDA-Public Use
  Company Number: 2009AP005076

PATIENT
  Age: 73 Year
  Sex: Female

DRUGS (14)
  1. ALENDRONATE SODIUM [Suspect]
     Indication: OSTEOPOROSIS
     Dosage: 70 MG; PO; QW
     Route: 048
     Dates: start: 20090928, end: 20091119
  2. ARTHROTEC [Suspect]
     Dosage: 50 MG; PO; TID
     Route: 048
     Dates: start: 20030507, end: 20091119
  3. AMOXICILLIN [Concomitant]
  4. BENDROFLUMETHIAZIDE (BENDROFLUMETHIAZIDE) [Concomitant]
  5. CALCIUM LACTATE (CALCIUM LACTATE) [Concomitant]
  6. CALCIUM PHOSPHATE (CALCIUM PHOSPHATE) [Concomitant]
  7. ERGOCALCIFEROL [Concomitant]
  8. VITAMIN D AND ANALOGUES (VITAMIN D AND ANALOGUES) [Concomitant]
  9. CODEINE PHOSPHATE (CODEINE PHOSPHATE) [Concomitant]
  10. DOSULEPIN HYDROCHLORIDE (DOSULEPIN HYDROCHLORIDE) [Concomitant]
  11. ENALAPRIL MALEATE [Concomitant]
  12. IPRATROPIUM BROMIDE [Concomitant]
  13. FLUTICASONE PROPIONATE [Concomitant]
  14. SALMETEROL XINAFOATE (SALMETEROL XINAFOATE) [Concomitant]

REACTIONS (3)
  - ELECTROMECHANICAL DISSOCIATION [None]
  - GASTRIC ULCER HAEMORRHAGE [None]
  - HAEMATEMESIS [None]
